FAERS Safety Report 18134982 (Version 2)
Quarter: 2020Q3

REPORT INFORMATION
  Report Type: Report from Study
  Country: US (occurrence: US)
  Receive Date: 20200811
  Receipt Date: 20200925
  Transmission Date: 20201103
  Serious: Yes (Hospitalization)
  Sender: FDA-Public Use
  Company Number: US-PFIZER INC-2020298923

PATIENT
  Age: 83 Year
  Sex: Female
  Weight: 34.61 kg

DRUGS (26)
  1. FEMARA [Concomitant]
     Active Substance: LETROZOLE
     Dosage: 2.5 MG (1 TABLET), 1X/DAY
     Route: 048
  2. MIRALAX [Concomitant]
     Active Substance: POLYETHYLENE GLYCOL 3350
     Dosage: 17 G (1 PACKET), AS NEEDED TWICE PER DAY AS NEEDED
     Route: 048
  3. JANUMET XR [Concomitant]
     Active Substance: METFORMIN HYDROCHLORIDE\SITAGLIPTIN PHOSPHATE
     Dosage: [METFORMIN HYDROCHLORIDE 1000MG]/[SITAGLIPTIN PHOSPHATE MONOHYDRATE 50MG] 1 TAB ONCE A DAY MULTIPHAS
     Route: 048
  4. VALTREX [Concomitant]
     Active Substance: VALACYCLOVIR HYDROCHLORIDE
     Dosage: 500 MG, 2X/DAY
     Route: 048
  5. PREVACID [Concomitant]
     Active Substance: LANSOPRAZOLE
     Dosage: 30 MG, 2X/DAY DELAYED RELEASE (EC)
     Route: 048
  6. MOVANTIK [Concomitant]
     Active Substance: NALOXEGOL OXALATE
     Dosage: 25 MG (1 TABLET), 1X/DAY EVERY MORNING BEFORE BREAKFAST
     Route: 048
  7. CENTRUM SILVER [ASCORBIC ACID;BETACAROTENE;BIOTIN;CALCIUM;CHROMIUM;COL [Concomitant]
     Dosage: 1 TABLET, 1X/DAY
     Route: 048
  8. LYRICA [Concomitant]
     Active Substance: PREGABALIN
     Dosage: 25 MG (1 CAPSULE), 1X/DAY (EVERY NIGHT)
     Route: 048
  9. COUMADIN [Concomitant]
     Active Substance: WARFARIN SODIUM
     Dosage: 1 MG (1 TABLET), EVERY EVENING
     Route: 048
  10. COUMADIN [Concomitant]
     Active Substance: WARFARIN SODIUM
     Dosage: 3 MG TABLET
     Route: 048
  11. DURAGESIC [Concomitant]
     Active Substance: FENTANYL
     Dosage: 1 PATCH EVERY 72 HOURS (STRENGTH: 75MCG/ HR)
     Route: 062
  12. NYSTOP [Concomitant]
     Active Substance: NYSTATIN
     Dosage: APPLY UNDER BREAST TWICE A DAY (POWDER)
  13. ROXICODONE [Concomitant]
     Active Substance: OXYCODONE HYDROCHLORIDE
     Indication: PAIN
     Dosage: 15 MG (1 TABLET), AS NEEDED EVERY 4 HOURS AS NEEDED
     Route: 048
  14. IBRANCE [Suspect]
     Active Substance: PALBOCICLIB
     Indication: BREAST CANCER METASTATIC
     Dosage: 100 MG, 1X/DAY FOR 21 DAYS (1 CAPSULE DAILY 3 WEEKS ON 1 WEEK OFF)
     Route: 048
     Dates: start: 20180402, end: 20200731
  15. TYLENOL [Concomitant]
     Active Substance: ACETAMINOPHEN
     Indication: PYREXIA
     Dosage: 625 MG (2 TABS ), EVERY 6 HOURS AS NEEDED
     Route: 048
  16. ECOTRIN [Concomitant]
     Active Substance: ASPIRIN
     Dosage: 81 MG, 1X/DAY DELAYED RELEASE (EC)
     Route: 048
  17. CYMBALTA [Concomitant]
     Active Substance: DULOXETINE HYDROCHLORIDE
     Dosage: 60 MG (1 CAPSULE), 1X/DAY (DELAYED RELEASE) (EC)
     Route: 048
  18. SINGULAIR [Concomitant]
     Active Substance: MONTELUKAST SODIUM
     Dosage: 10 MG (1 TABLET), 1X/DAY
     Route: 048
  19. ZYPREXA ZYDIS [Concomitant]
     Active Substance: OLANZAPINE
     Dosage: 5 MG (1 TABLET), 1X/DAY (EVERY NIGHT) RAPID DISSOLVE
     Route: 048
  20. SENOKOT?S [Concomitant]
     Active Substance: DOCUSATE SODIUM\SENNOSIDES
     Dosage: [DOCUSATE SODIUM 50MG]/[SENNOSIDE A+B 8.6MG] 2 TABLETS, 2X/DAY
     Route: 048
  21. BUSPAR [Concomitant]
     Active Substance: BUSPIRONE HYDROCHLORIDE
     Dosage: 5 MG, 2X/DAY (1 TABLET)
     Route: 048
  22. SALONPAS [CAMPHOR;MENTHOL;METHYL SALICYLATE] [Concomitant]
     Dosage: 1 PATCH BY APPLY EXTERNALLY (ADHESIVE PATCH MEDICATED)
  23. VITAMIN D3 [Concomitant]
     Active Substance: CHOLECALCIFEROL
     Dosage: 1000 IU, 1X/DAY
     Route: 048
  24. DESYREL [Concomitant]
     Active Substance: TRAZODONE HYDROCHLORIDE
     Dosage: 100 MG, 1X/DAY (BEDTIME)
     Route: 048
  25. TYLENOL [Concomitant]
     Active Substance: ACETAMINOPHEN
     Indication: PAIN
  26. KLONOPIN [Concomitant]
     Active Substance: CLONAZEPAM
     Dosage: 1/2 (0.5) TABLET TWICE DAILY
     Route: 048

REACTIONS (2)
  - Failure to thrive [Recovered/Resolved]
  - Diarrhoea [Recovered/Resolved with Sequelae]

NARRATIVE: CASE EVENT DATE: 20200731
